FAERS Safety Report 7258497-8 (Version None)
Quarter: 2011Q1

REPORT INFORMATION
  Report Type: 
  Country: None (occurrence: None)
  Receive Date: 20110129
  Receipt Date: 20100528
  Transmission Date: 20110831
  Serious: No
  Sender: FDA-Public Use
  Company Number: US-ABBOTT-10P-163-0647678-00

PATIENT
  Age: 66 Year
  Sex: Female

DRUGS (7)
  1. HUMIRA [Suspect]
     Indication: RHEUMATOID ARTHRITIS
     Dates: start: 20060601
  2. LODINE [Concomitant]
     Indication: PRODUCT USED FOR UNKNOWN INDICATION
  3. OTC PREVACID [Concomitant]
     Indication: PRODUCT USED FOR UNKNOWN INDICATION
     Dosage: (NOT SURE IF IT'S 20MG OR 40MG DAILY)
  4. GLUCOSAMINE W/CHONDROITIN [Concomitant]
     Indication: RHEUMATOID ARTHRITIS
     Dosage: 1500MG DAILY
  5. CALCIUM [Concomitant]
     Indication: PRODUCT USED FOR UNKNOWN INDICATION
  6. ZANTAC [Concomitant]
     Indication: GASTROOESOPHAGEAL REFLUX DISEASE
  7. ASCORBIC ACID [Concomitant]
     Indication: PRODUCT USED FOR UNKNOWN INDICATION

REACTIONS (1)
  - SINUSITIS [None]
